FAERS Safety Report 20434642 (Version 1)
Quarter: 2022Q1

REPORT INFORMATION
  Report Type: Spontaneous
  Country: SK (occurrence: SK)
  Receive Date: 20220206
  Receipt Date: 20220206
  Transmission Date: 20220423
  Serious: Yes (Hospitalization, Other)
  Sender: FDA-Public Use
  Company Number: SK-NOVARTISPH-NVSC2022SK024571

PATIENT
  Sex: Male

DRUGS (1)
  1. GILENYA [Suspect]
     Active Substance: FINGOLIMOD HYDROCHLORIDE
     Indication: Product used for unknown indication
     Dosage: UNK
     Route: 065
     Dates: start: 201603

REACTIONS (9)
  - Skin disorder [Unknown]
  - Weight decreased [Unknown]
  - Asthenia [Unknown]
  - Monoparesis [Unknown]
  - Muscular weakness [Unknown]
  - Paraparesis [Unknown]
  - Bradyphrenia [Unknown]
  - Inappropriate affect [Unknown]
  - Mental disorder [Recovered/Resolved]

NARRATIVE: CASE EVENT DATE: 20160101
